FAERS Safety Report 10264953 (Version 1)
Quarter: 2014Q2

REPORT INFORMATION
  Report Type: Report from Study
  Country: JP (occurrence: None)
  Receive Date: 20140624
  Receipt Date: 20140624
  Transmission Date: 20141212
  Serious: Yes (Other)
  Sender: FDA-Public Use
  Company Number: 2014-19781

PATIENT
  Age: 74 Year
  Sex: Male
  Weight: 40 kg

DRUGS (2)
  1. EYLEA [Suspect]
     Indication: AGE-RELATED MACULAR DEGENERATION
     Route: 031
     Dates: start: 20130604, end: 20130604
  2. VEGAMOX (MOXIFLOXACIN HYDROCHLORIDE) [Concomitant]

REACTIONS (1)
  - Macular hole [None]
